FAERS Safety Report 17741345 (Version 1)
Quarter: 2020Q2

REPORT INFORMATION
  Report Type: Spontaneous
  Country: US (occurrence: US)
  Receive Date: 20200504
  Receipt Date: 20200504
  Transmission Date: 20200714
  Serious: Yes (Life-Threatening, Hospitalization)
  Sender: FDA-Public Use
  Company Number: US-ACELLA PHARMACEUTICALS, LLC-2083466

PATIENT
  Age: 52 Year
  Sex: Male

DRUGS (2)
  1. FLUOXETINE [Concomitant]
     Active Substance: FLUOXETINE HYDROCHLORIDE
  2. PHENYTOIN SODIUM. [Suspect]
     Active Substance: PHENYTOIN SODIUM
     Indication: SEIZURE
     Route: 065

REACTIONS (5)
  - Systolic dysfunction [Recovering/Resolving]
  - Hyperhidrosis [Unknown]
  - Tachycardia [Unknown]
  - Hypotension [Unknown]
  - Angioedema [Unknown]
